FAERS Safety Report 4813959-5 (Version None)
Quarter: 2005Q4

REPORT INFORMATION
  Report Type: 
  Country: None (occurrence: None)
  Receive Date: 20051028
  Receipt Date: 20041119
  Transmission Date: 20060501
  Serious: No
  Sender: FDA-Public Use
  Company Number: US-GLAXOSMITHKLINE-A0534629A

PATIENT
  Age: 73 Year
  Sex: Female

DRUGS (12)
  1. SEREVENT [Suspect]
     Indication: ASTHMA
     Dosage: 1PUFF TWICE PER DAY
     Route: 055
     Dates: start: 20010101
  2. PLAVIX [Concomitant]
  3. ZETIA [Concomitant]
  4. UNKNOWN MEDICATION [Concomitant]
  5. ATROVENT [Concomitant]
  6. LEVOXYL [Concomitant]
  7. CARTIA XT [Concomitant]
  8. PULMICORT [Concomitant]
  9. SINGULAIR [Concomitant]
  10. KLOR-CON [Concomitant]
  11. NITROFURANTOIN [Concomitant]
  12. FUROSEMIDE [Concomitant]

REACTIONS (1)
  - DIZZINESS [None]
